FAERS Safety Report 5478119-6 (Version None)
Quarter: 2007Q4

REPORT INFORMATION
  Report Type: 
  Country: None (occurrence: None)
  Receive Date: 20071005
  Receipt Date: 20070921
  Transmission Date: 20080405
  Serious: Yes (Other)
  Sender: FDA-Public Use
  Company Number: FR-JNJFOC-20071000945

PATIENT
  Sex: Male

DRUGS (5)
  1. IXPRIM [Suspect]
     Indication: DEVICE RELATED INFECTION
     Route: 048
  2. FLAGYL [Suspect]
     Indication: DEVICE RELATED INFECTION
     Route: 048
  3. TARGOCID [Concomitant]
     Route: 030
  4. KETOPROFEN [Concomitant]
     Route: 048
  5. CLAMOXYL [Concomitant]
     Route: 048

REACTIONS (2)
  - FORMICATION [None]
  - PERIPHERAL SENSORY NEUROPATHY [None]
